FAERS Safety Report 25199235 (Version 1)
Quarter: 2025Q2

REPORT INFORMATION
  Report Type: Spontaneous
  Country: DE (occurrence: DE)
  Receive Date: 20250415
  Receipt Date: 20250415
  Transmission Date: 20250716
  Serious: Yes (Hospitalization, Other)
  Sender: ALNYLAM PHARMACEUTICALS
  Company Number: DE-ALNYLAM PHARMACEUTICALS, INC.-ALN-2025-002426

PATIENT

DRUGS (1)
  1. AMVUTTRA [Suspect]
     Active Substance: VUTRISIRAN
     Indication: Product used for unknown indication
     Route: 065

REACTIONS (4)
  - Intensive care [Unknown]
  - Pneumonia [Unknown]
  - Hip arthroplasty [Unknown]
  - Multimorbidity [Unknown]
